FAERS Safety Report 10645001 (Version 1)
Quarter: 2014Q4

REPORT INFORMATION
  Report Type: Spontaneous
  Country: US (occurrence: None)
  Receive Date: 20141210
  Receipt Date: 20141210
  Transmission Date: 20150529
  Serious: No
  Sender: FDA-Public Use
  Company Number: None

PATIENT
  Age: 66 Year
  Sex: Female
  Weight: 50.8 kg

DRUGS (1)
  1. PHENAZOPYRIDINE HYDROCHLORIDE. [Suspect]
     Active Substance: PHENAZOPYRIDINE HYDROCHLORIDE
     Dosage: 2 TABLETS, THREE TIMES DAILY, TAKEN BY MOUTH
     Route: 048
     Dates: start: 20141201, end: 20141201

REACTIONS (3)
  - Dizziness [None]
  - Cognitive disorder [None]
  - Asthenia [None]

NARRATIVE: CASE EVENT DATE: 20141201
